FAERS Safety Report 24332661 (Version 1)
Quarter: 2024Q3

REPORT INFORMATION
  Report Type: Spontaneous
  Country: JP (occurrence: JP)
  Receive Date: 20240918
  Receipt Date: 20240918
  Transmission Date: 20241017
  Serious: Yes (Other)
  Sender: CHEPLAPHARM
  Company Number: JP-CLGN-JP-CLI-2024-010531

PATIENT
  Age: 85 Year
  Sex: Male

DRUGS (1)
  1. HYDROXYUREA [Suspect]
     Active Substance: HYDROXYUREA
     Indication: Polycythaemia vera
     Route: 048

REACTIONS (5)
  - Cerebral infarction [Unknown]
  - Product use complaint [Unknown]
  - Dysphagia [Unknown]
  - Feeding disorder [Unknown]
  - Wrong technique in product usage process [Unknown]
